FAERS Safety Report 20688470 (Version 1)
Quarter: 2022Q2

REPORT INFORMATION
  Report Type: Spontaneous
  Country: US (occurrence: US)
  Receive Date: 20220408
  Receipt Date: 20220408
  Transmission Date: 20220720
  Serious: Yes (Death, Other)
  Sender: FDA-Public Use
  Company Number: US-ALKEM LABORATORIES LIMITED-US-ALKEM-2022-03016

PATIENT

DRUGS (10)
  1. TACROLIMUS [Suspect]
     Active Substance: TACROLIMUS
     Indication: Immunosuppression
     Dosage: 8-15 NG/ML (KIDNEY FUNCTION NORMAL)/ 4-8 NG/ML (KIDNEY FUNCTION IMPAIRED) (TROUGH BLOOD LEVEL)
     Route: 065
  2. MYCOPHENOLATE MOFETIL [Suspect]
     Active Substance: MYCOPHENOLATE MOFETIL
     Indication: Immunosuppression
     Dosage: 1 GRAM, BID
     Route: 065
  3. BELATACEPT [Suspect]
     Active Substance: BELATACEPT
     Indication: Immunosuppression
     Dosage: 10 MILLIGRAM/KILOGRAM ON DAYS 7, 14, 28, 56, AND 84
     Route: 065
  4. BELATACEPT [Suspect]
     Active Substance: BELATACEPT
     Dosage: 5 MILLIGRAM/KILOGRAM, ON DAYS 112,140, 168, 196, 224, 252, 280, 308, 336, AND 364
     Route: 065
  5. THYMOCYTE IMMUNE GLOBULIN NOS [Suspect]
     Active Substance: THYMOCYTE IMMUNE GLOBULIN NOS
     Indication: Immunosuppression
     Dosage: 1 MILLIGRAM/KILOGRAM ON DAYS 0, 1, AND 2
  6. METHYLPREDNISOLONE [Suspect]
     Active Substance: METHYLPREDNISOLONE
     Indication: Immunosuppression
     Dosage: 0.5 MILLIGRAM/KILOGRAM (AFTER TRANSPLANT 6 DOSES)
     Route: 042
  7. PREDNISONE [Suspect]
     Active Substance: PREDNISONE
     Indication: Immunosuppression
     Dosage: 0.5 MILLIGRAM/KILOGRAM, BID, THROUGH DAY 14
     Route: 042
  8. PREDNISONE [Suspect]
     Active Substance: PREDNISONE
     Dosage: 0.2 MILLIGRAM/KILOGRAM, QD THROUGH DAY 30
     Route: 042
  9. PREDNISONE [Suspect]
     Active Substance: PREDNISONE
     Dosage: 0.1 MILLIGRAM/KILOGRAM, QD THROUGH DAY 180
     Route: 042
  10. PREDNISONE [Suspect]
     Active Substance: PREDNISONE
     Dosage: 5 MILLIGRAM, QD, THROUGH DAY 365

REACTIONS (2)
  - Pulmonary embolism [Fatal]
  - Pelvic fracture [Fatal]
